FAERS Safety Report 7982352-9 (Version None)
Quarter: 2011Q4

REPORT INFORMATION
  Report Type: 
  Country: None (occurrence: None)
  Receive Date: 20111215
  Receipt Date: 20111205
  Transmission Date: 20120403
  Serious: Yes (Death, Other)
  Sender: FDA-Public Use
  Company Number: PHHY2011US108562

PATIENT
  Age: 30 Year
  Sex: Female

DRUGS (3)
  1. VENLAFAXINE [Suspect]
  2. QUETIAPINE [Suspect]
  3. CARBAMAZEPINE [Suspect]

REACTIONS (2)
  - COMPLETED SUICIDE [None]
  - DRUG LEVEL INCREASED [None]
